FAERS Safety Report 8263622-6 (Version None)
Quarter: 2012Q2

REPORT INFORMATION
  Report Type: 
  Country: None (occurrence: None)
  Receive Date: 20120405
  Receipt Date: 20120403
  Transmission Date: 20120825
  Serious: Yes (Death, Hospitalization)
  Sender: FDA-Public Use
  Company Number: FR-B.I. PHARMACEUTICALS,INC./RIDGEFIELD-2012-FF-00395FF

PATIENT
  Age: 83 Year
  Sex: Female

DRUGS (5)
  1. LASIX [Concomitant]
  2. PRADAXA [Suspect]
     Indication: ATRIAL FIBRILLATION
     Dosage: 220 MG
     Route: 048
     Dates: start: 20120106, end: 20120131
  3. ATACAND [Concomitant]
  4. BISOPROLOL FUMARATE [Concomitant]
  5. FLUTICASONE PROPIONATE/SALMETEROL [Concomitant]

REACTIONS (4)
  - FALL [None]
  - FEMORAL NECK FRACTURE [None]
  - INTERNATIONAL NORMALISED RATIO INCREASED [None]
  - HAEMATOMA [None]
